FAERS Safety Report 11562641 (Version 1)
Quarter: 2015Q3

REPORT INFORMATION
  Report Type: Spontaneous
  Country: US (occurrence: US)
  Receive Date: 20150916
  Receipt Date: 20150916
  Transmission Date: 20151125
  Serious: No
  Sender: FDA-Public Use
  Company Number: US-ELI_LILLY_AND_COMPANY-US200812003349

PATIENT
  Age: 78 Year
  Sex: Female
  Weight: 70.3 kg

DRUGS (12)
  1. FORTEO [Suspect]
     Active Substance: TERIPARATIDE
     Indication: OSTEOPOROSIS
     Dosage: 20 UG, DAILY (1/D)
     Dates: start: 20071030, end: 200812
  2. GLYBURIDE. [Concomitant]
     Active Substance: GLYBURIDE
     Dosage: 2.5 MG, 2/D
  3. FOSAMAX [Concomitant]
     Active Substance: ALENDRONATE SODIUM
     Indication: OSTEOPOROSIS
  4. AMLODIPINE [Concomitant]
     Active Substance: AMLODIPINE BESYLATE
  5. NEXIUM [Concomitant]
     Active Substance: ESOMEPRAZOLE MAGNESIUM
     Dosage: 40 MG, DAILY (1/D)
  6. CADUET [Concomitant]
     Active Substance: AMLODIPINE BESYLATE\ATORVASTATIN CALCIUM
     Dosage: 10/20 MG DAILY
  7. LEVOXYL [Concomitant]
     Active Substance: LEVOTHYROXINE SODIUM
     Dosage: 100 UG, DAILY (1/D)
  8. MIRTAZAPINE. [Concomitant]
     Active Substance: MIRTAZAPINE
  9. VITAMIN D [Concomitant]
     Active Substance: CHOLECALCIFEROL
     Dosage: 50000 IU, 2/W
     Dates: start: 2007
  10. NEURONTIN [Concomitant]
     Active Substance: GABAPENTIN
     Dosage: 600 MG, 3/D
  11. CETIRIZINE [Concomitant]
     Active Substance: CETIRIZINE HYDROCHLORIDE
  12. MOBIC [Concomitant]
     Active Substance: MELOXICAM
     Dosage: 7.5 MG, DAILY (1/D)

REACTIONS (12)
  - Hypercalcaemia [Recovering/Resolving]
  - Discomfort [Recovered/Resolved]
  - Peripheral coldness [Unknown]
  - Surgery [Recovered/Resolved]
  - Heart rate increased [Recovered/Resolved]
  - Pain in extremity [Recovered/Resolved]
  - Formication [Unknown]
  - Muscle spasms [Unknown]
  - Cardiac flutter [Recovered/Resolved]
  - Peripheral swelling [Recovered/Resolved]
  - Back disorder [Recovered/Resolved]
  - Palpitations [Recovered/Resolved]

NARRATIVE: CASE EVENT DATE: 200802
